FAERS Safety Report 8047696 (Version 2)
Quarter: 2016Q3

REPORT INFORMATION
  Report Type: Spontaneous
  Country: US (occurrence: US)
  Receive Date: 20110721
  Receipt Date: 20160705
  Transmission Date: 20161109
  Serious: Yes (Other)
  Sender: FDA-Public Use
  Company Number: US-BAYER-2011-062840

PATIENT
  Age: 50 Year
  Sex: Female

DRUGS (1)
  1. MIRENA [Suspect]
     Active Substance: LEVONORGESTREL
     Dosage: 20 MCG/24HR, CONT
     Route: 015
     Dates: start: 20110611, end: 20160627

REACTIONS (9)
  - Device dislocation [None]
  - Affect lability [None]
  - Procedural pain [Recovered/Resolved]
  - Depression [None]
  - Crying [None]
  - Vaginal haemorrhage [None]
  - Post procedural haemorrhage [None]
  - Weight increased [None]
  - Procedural haemorrhage [Recovered/Resolved]

NARRATIVE: CASE EVENT DATE: 201106
